FAERS Safety Report 17079648 (Version 1)
Quarter: 2019Q4

REPORT INFORMATION
  Report Type: Spontaneous
  Country: CN (occurrence: CN)
  Receive Date: 20191127
  Receipt Date: 20191127
  Transmission Date: 20200122
  Serious: Yes (Hospitalization, Other)
  Sender: FDA-Public Use
  Company Number: CN-BAXTER-2019BAX023696

PATIENT
  Age: 30 Year
  Sex: Male
  Weight: 70 kg

DRUGS (20)
  1. CYTOSAR [Suspect]
     Active Substance: CYTARABINE
     Indication: ACUTE LYMPHOCYTIC LEUKAEMIA
     Dosage: FIRST COURSE OF CHEMOTHERAPY WITH C10403 REGIMEN. CYTOSAR + 0.9% SODIUM CHLORIDE
     Route: 041
  2. MERCAPTOPURINE. [Suspect]
     Active Substance: MERCAPTOPURINE
     Dosage: SECOND COURSE OF CHEMOTHERAPY WITH C10403 REGIMEN. DOSAGE FORM: TABLETS
     Route: 048
     Dates: start: 20190108, end: 20190121
  3. ENDOXAN [Suspect]
     Active Substance: CYCLOPHOSPHAMIDE
     Dosage: SECOND COURSE OF CHEMOTHERAPY WITH C10403 REGIMEN. ENDOXAN 1700 MG + 0.9% SODIUM CHLORIDE 250 ML
     Route: 041
     Dates: start: 20190107, end: 20190108
  4. 0.9% SODIUM CHLORIDE INJECTION [Suspect]
     Active Substance: SODIUM CHLORIDE
     Indication: MEDICATION DILUTION
     Dosage: FIRST COURSE OF CHEMOTHERAPY WITH C10403 REGIMEN. VINCRISTINE SULFATE + 0.9% SODIUM CHLORIDE
     Route: 042
  5. 0.9% SODIUM CHLORIDE INJECTION [Suspect]
     Active Substance: SODIUM CHLORIDE
     Dosage: SECOND COURSE OF CHEMOTHERAPY WITH C10403 REGIMEN. VINCRISTINE SULFATE 2MG+0.9% SODIUM CHLORIDE 20ML
     Route: 042
     Dates: start: 20190130, end: 20190130
  6. SODIUM CHLORIDE. [Suspect]
     Active Substance: SODIUM CHLORIDE
     Dosage: FIRST COURSE OF CHEMOTHERAPY WITH C10403 REGIMEN. CYTOSAR + 0.9% SODIUM CHLORIDE
     Route: 041
  7. SODIUM CHLORIDE. [Suspect]
     Active Substance: SODIUM CHLORIDE
     Dosage: SECOND COURSE OF CHEMOTHERAPY WITH C10403 REGIMEN. ENDOXAN 1700 MG + 0.9% SODIUM CHLORIDE 250 ML
     Route: 041
     Dates: start: 20190107, end: 20190108
  8. PEGASPARGASE [Suspect]
     Active Substance: PEGASPARGASE
     Dosage: SECOND COURSE OF CHEMOTHERAPY WITH C10403 REGIMEN
     Route: 030
     Dates: start: 20190123, end: 20190123
  9. CYTOSAR [Suspect]
     Active Substance: CYTARABINE
     Dosage: SECOND COURSE OF CHEMOTHERAPY WITH C10403 REGIMEN. CYTOSAR 150 MG + 0.9% SODIUM CHLORIDE 100 ML
     Route: 041
     Dates: start: 20190107, end: 20190111
  10. MERCAPTOPURINE. [Suspect]
     Active Substance: MERCAPTOPURINE
     Indication: ACUTE LYMPHOCYTIC LEUKAEMIA
     Dosage: FIRST COURSE OF CHEMOTHERAPY WITH C10403 REGIMEN. DOSAGE FORM: TABLETS
     Route: 048
  11. VINCRISTINE SULFATE. [Suspect]
     Active Substance: VINCRISTINE SULFATE
     Dosage: SECOND COURSE OF CHEMOTHERAPY WITH C10403 REGIMEN. VINCRISTINE SULFATE 2MG+0.9% SODIUM CHLORIDE 20ML
     Route: 042
     Dates: start: 20190130, end: 20190130
  12. ENDOXAN [Suspect]
     Active Substance: CYCLOPHOSPHAMIDE
     Indication: ACUTE LYMPHOCYTIC LEUKAEMIA
     Dosage: FIRST COURSE OF CHEMOTHERAPY WITH C10403 REGIMEN. ENDOXAN + 0.9% SODIUM CHLORIDE
     Route: 041
  13. SODIUM CHLORIDE. [Suspect]
     Active Substance: SODIUM CHLORIDE
     Indication: MEDICATION DILUTION
     Dosage: FIRST COURSE OF CHEMOTHERAPY WITH C10403 REGIMEN. ENDOXAN + 0.9% SODIUM CHLORIDE
     Route: 041
  14. VINCRISTINE SULFATE. [Suspect]
     Active Substance: VINCRISTINE SULFATE
     Dosage: SECOND COURSE OF CHEMOTHERAPY WITH C10403 REGIMEN. VINCRISTINE SULFATE 2MG+0.9% SODIUM CHLORIDE 20ML
     Route: 042
     Dates: start: 20190123, end: 20190123
  15. 0.9% SODIUM CHLORIDE INJECTION [Suspect]
     Active Substance: SODIUM CHLORIDE
     Dosage: SECOND COURSE OF CHEMOTHERAPY WITH C10403 REGIMEN. VINCRISTINE SULFATE 2MG+0.9% SODIUM CHLORIDE 20ML
     Route: 042
     Dates: start: 20190123, end: 20190123
  16. CYTOSAR [Suspect]
     Active Substance: CYTARABINE
     Dosage: SECOND COURSE OF CHEMOTHERAPY WITH C10403 REGIMEN. CYTOSAR 150 MG + 0.9% SODIUM CHLORIDE 100 ML
     Route: 041
     Dates: start: 20190116, end: 20190119
  17. SODIUM CHLORIDE. [Suspect]
     Active Substance: SODIUM CHLORIDE
     Dosage: SECOND COURSE OF CHEMOTHERAPY WITH C10403 REGIMEN. CYTOSAR 150 MG + 0.9% SODIUM CHLORIDE 100 ML
     Route: 041
     Dates: start: 20190107, end: 20190111
  18. SODIUM CHLORIDE. [Suspect]
     Active Substance: SODIUM CHLORIDE
     Dosage: SECOND COURSE OF CHEMOTHERAPY WITH C10403 REGIMEN. CYTOSAR 150 MG + 0.9% SODIUM CHLORIDE 100 ML
     Route: 041
     Dates: start: 20190116, end: 20190119
  19. VINCRISTINE SULFATE. [Suspect]
     Active Substance: VINCRISTINE SULFATE
     Indication: ACUTE LYMPHOCYTIC LEUKAEMIA
     Dosage: FIRST COURSE OF CHEMOTHERAPY WITH C10403 REGIMEN. VINCRISTINE SULFATE + 0.9% SODIUM CHLORIDE
     Route: 042
  20. PEGASPARGASE [Suspect]
     Active Substance: PEGASPARGASE
     Indication: ACUTE LYMPHOCYTIC LEUKAEMIA
     Dosage: FIRST COURSE OF CHEMOTHERAPY WITH C10403 REGIMEN
     Route: 030

REACTIONS (3)
  - Leukopenia [Recovering/Resolving]
  - Bone marrow failure [Recovering/Resolving]
  - Neutropenia [Recovering/Resolving]

NARRATIVE: CASE EVENT DATE: 20190114
